FAERS Safety Report 7775837-1 (Version None)
Quarter: 2011Q3

REPORT INFORMATION
  Report Type: 
  Country: None (occurrence: None)
  Receive Date: 20110923
  Receipt Date: 20110922
  Transmission Date: 20111222
  Serious: Yes (Death)
  Sender: FDA-Public Use
  Company Number: PHHY2011US29831

PATIENT
  Sex: Male

DRUGS (1)
  1. STALEVO 100 [Suspect]
     Dosage: UNK UKN, UNK

REACTIONS (2)
  - CARDIAC FAILURE CHRONIC [None]
  - GENERAL PHYSICAL HEALTH DETERIORATION [None]
